FAERS Safety Report 9222567 (Version 1)
Quarter: 2013Q1

REPORT INFORMATION
  Report Type: Spontaneous
  Country: US (occurrence: US)
  Receive Date: 20120914
  Receipt Date: 20120914
  Transmission Date: 20140127
  Serious: Yes (Other)
  Sender: FDA-Public Use
  Company Number: JPI-P-021296

PATIENT
  Age: 41 Year
  Sex: Male
  Weight: 102.06 kg

DRUGS (6)
  1. XYREM (500 MG/ML SOLUTION)(SODIUM OXYBATE) [Suspect]
     Indication: CATAPLEXY
     Dosage: TWO DOSAGES OF 3 GM TAKEN TWICE AT BEDTIME/NIGHTLY.
     Route: 048
     Dates: start: 20100325
  2. DULOXETINE [Suspect]
     Indication: PRODUCT USED FOR UNKNOWN INDICATION
     Dates: start: 201204
  3. MIRTAZAPINE [Suspect]
     Indication: INSOMNIA
     Dates: start: 201205
  4. MECLIZINE [Concomitant]
  5. HYOSCYAMINE [Concomitant]
  6. ARMODAFINIL [Concomitant]

REACTIONS (16)
  - Blood pressure increased [None]
  - Anxiety [None]
  - Dysphonia [None]
  - Tremor [None]
  - Heart rate increased [None]
  - Panic attack [None]
  - Contusion [None]
  - Pyrexia [None]
  - Decreased appetite [None]
  - Asthenia [None]
  - Dizziness [None]
  - Initial insomnia [None]
  - Emotional disorder [None]
  - Incorrect dose administered [None]
  - Insomnia [None]
  - Somnolence [None]
